FAERS Safety Report 4636126-7 (Version None)
Quarter: 2005Q2

REPORT INFORMATION
  Report Type: 
  Country: None (occurrence: None)
  Receive Date: 20050325
  Receipt Date: 20050121
  Transmission Date: 20051028
  Serious: No
  Sender: FDA-Public Use
  Company Number: USA040670618

PATIENT
  Age: 71 Year
  Sex: Female
  Weight: 55 kg

DRUGS (4)
  1. FORTEO [Suspect]
     Indication: OSTEOPOROSIS
     Dates: start: 20040201
  2. NIFEDIPINE [Concomitant]
  3. OSCAL (CALCIUM CARBONATE) [Concomitant]
  4. DURAGESIC-100 [Concomitant]

REACTIONS (11)
  - BLOOD IRON DECREASED [None]
  - CHROMATURIA [None]
  - FATIGUE [None]
  - FIBROMYALGIA [None]
  - INJECTION SITE ERYTHEMA [None]
  - INJECTION SITE HAEMORRHAGE [None]
  - INJECTION SITE PAIN [None]
  - PAIN IN EXTREMITY [None]
  - PHLEBITIS [None]
  - SPIDER VEIN [None]
  - WEIGHT DECREASED [None]
